FAERS Safety Report 6805720-7 (Version None)
Quarter: 2010Q2

REPORT INFORMATION
  Report Type: 
  Country: None (occurrence: None)
  Receive Date: 20100628
  Receipt Date: 20080507
  Transmission Date: 20101027
  Serious: No
  Sender: FDA-Public Use
  Company Number: US-PFIZER INC-2008040146

PATIENT
  Sex: Male

DRUGS (3)
  1. SUTENT [Suspect]
     Indication: RENAL CELL CARCINOMA
     Dates: start: 20080101
  2. DRUG, UNSPECIFIED [Concomitant]
  3. ATENOLOL [Concomitant]

REACTIONS (2)
  - CHEST PAIN [None]
  - VISION BLURRED [None]
